FAERS Safety Report 24880283 (Version 1)
Quarter: 2025Q1

REPORT INFORMATION
  Report Type: Spontaneous
  Country: US (occurrence: None)
  Receive Date: 20250123
  Receipt Date: 20250123
  Transmission Date: 20250408
  Serious: Yes (Life-Threatening)
  Sender: FDA-CTU
  Company Number: None

PATIENT
  Age: 62 Year
  Sex: Female
  Weight: 59.4 kg

DRUGS (6)
  1. NOVOLOG [Suspect]
     Active Substance: INSULIN ASPART
  2. LANTUS [Suspect]
     Active Substance: INSULIN GLARGINE
  3. CYANOCOBALAMIN [Concomitant]
     Active Substance: CYANOCOBALAMIN
  4. CVS Glucose Meter [Concomitant]
  5. FreeStyle Lite Glucose Meter [Concomitant]
  6. One A Day Women^s Vitamin [Concomitant]

REACTIONS (8)
  - Suspected product tampering [None]
  - Dizziness [None]
  - Asthenia [None]
  - Balance disorder [None]
  - Gait disturbance [None]
  - Somnolence [None]
  - Carpal tunnel syndrome [None]
  - Condition aggravated [None]

NARRATIVE: CASE EVENT DATE: 20241226
